FAERS Safety Report 25850379 (Version 2)
Quarter: 2025Q4

REPORT INFORMATION
  Report Type: Spontaneous
  Country: IN (occurrence: IN)
  Receive Date: 20250926
  Receipt Date: 20251007
  Transmission Date: 20260118
  Serious: Yes (Other)
  Sender: TORRENT PHARMA INC.
  Company Number: IN-TORRENT-00004089

PATIENT
  Age: 30 Year
  Sex: Male

DRUGS (1)
  1. DICLOFENAC [Suspect]
     Active Substance: DICLOFENAC
     Indication: Back pain
     Dosage: UNKNOWN
     Route: 030

REACTIONS (1)
  - Embolia cutis medicamentosa [Recovered/Resolved with Sequelae]
